FAERS Safety Report 8722565 (Version 2)
Quarter: 2013Q4

REPORT INFORMATION
  Report Type: Spontaneous
  Country: FR (occurrence: FR)
  Receive Date: 20120814
  Receipt Date: 20131003
  Transmission Date: 20140711
  Serious: Yes (Life-Threatening, Hospitalization)
  Sender: FDA-Public Use
  Company Number: FR-ROCHE-1099957

PATIENT
  Age: 59 Year
  Sex: Female

DRUGS (6)
  1. ROACTEMRA [Suspect]
     Indication: RHEUMATOID ARTHRITIS
     Route: 042
     Dates: start: 200901, end: 201106
  2. ROACTEMRA [Suspect]
     Route: 042
     Dates: start: 201106, end: 201203
  3. CORTANCYL [Suspect]
     Indication: PRODUCT USED FOR UNKNOWN INDICATION
     Route: 048
  4. LYRICA [Concomitant]
     Route: 048
  5. INEXIUM [Concomitant]
     Route: 048
  6. TAHOR [Concomitant]
     Route: 048

REACTIONS (3)
  - Perforated ulcer [Recovered/Resolved with Sequelae]
  - Peritonitis [Recovered/Resolved with Sequelae]
  - Duodenal ulcer [Recovered/Resolved with Sequelae]
